FAERS Safety Report 4845311-0 (Version None)
Quarter: 2005Q4

REPORT INFORMATION
  Report Type: 
  Country: None (occurrence: None)
  Receive Date: 20051205
  Receipt Date: 20051107
  Transmission Date: 20060501
  Serious: Yes (Hospitalization)
  Sender: FDA-Public Use
  Company Number: J200503785

PATIENT
  Age: 21 Year
  Sex: Male

DRUGS (3)
  1. SAWACILLIN [Suspect]
     Dosage: 250MG THREE TIMES PER DAY
     Route: 048
     Dates: start: 20051010, end: 20051011
  2. DEPAKENE [Suspect]
     Indication: EPILEPSY
     Dosage: 600MG FOUR TIMES PER DAY
     Route: 048
     Dates: start: 20030101
  3. LOXONIN [Suspect]
     Dosage: 60MG AS REQUIRED
     Route: 048
     Dates: start: 20051010, end: 20051011

REACTIONS (3)
  - CELLULITIS [None]
  - DRUG ERUPTION [None]
  - GENERALISED ERYTHEMA [None]
